FAERS Safety Report 14380508 (Version 1)
Quarter: 2018Q1

REPORT INFORMATION
  Report Type: Spontaneous
  Country: GB (occurrence: GB)
  Receive Date: 20180112
  Receipt Date: 20180112
  Transmission Date: 20180509
  Serious: Yes (Hospitalization, Other)
  Sender: FDA-Public Use
  Company Number: GB-PFIZER INC-2018013167

PATIENT
  Age: 47 Year
  Sex: Female
  Weight: 135.9 kg

DRUGS (1)
  1. AMLODIPINE BESILATE [Suspect]
     Active Substance: AMLODIPINE BESYLATE
     Indication: HYPERTENSION
     Dosage: 5 MG, UNK
     Route: 048
     Dates: start: 20171130, end: 20171219

REACTIONS (5)
  - Insomnia [Unknown]
  - Dizziness [Unknown]
  - Hypoaesthesia [Unknown]
  - Pruritus [Unknown]
  - Formication [Unknown]

NARRATIVE: CASE EVENT DATE: 20171215
